APPROVED DRUG PRODUCT: OPVEE
Active Ingredient: NALMEFENE HYDROCHLORIDE
Strength: EQ 2.7MG BASE/SPRAY
Dosage Form/Route: SPRAY;NASAL
Application: N217470 | Product #001
Applicant: INDIVIOR INC
Approved: May 22, 2023 | RLD: Yes | RS: Yes | Type: RX

PATENTS:
Patent 12290596 | Expires: Aug 4, 2042
Patent 11458091 | Expires: Jul 10, 2038

EXCLUSIVITY:
Code: NP | Date: May 22, 2026